FAERS Safety Report 22249924 (Version 3)
Quarter: 2024Q2

REPORT INFORMATION
  Report Type: Spontaneous
  Country: US (occurrence: US)
  Receive Date: 20230425
  Receipt Date: 20240527
  Transmission Date: 20240716
  Serious: No
  Sender: FDA-Public Use
  Company Number: US-PFIZER INC-PV202300073251

PATIENT
  Age: 60 Year
  Sex: Female

DRUGS (2)
  1. IBRANCE [Suspect]
     Active Substance: PALBOCICLIB
     Dosage: TAKE 1 EVERY OTHER DAY FOR 21 DAYS, OFF 7
     Route: 048
  2. IBRANCE [Suspect]
     Active Substance: PALBOCICLIB
     Dosage: 100 MG EVERY OTHER DAY FOR 21 DAYS, OFF FOR 7 DAYS
     Route: 048

REACTIONS (3)
  - Diarrhoea [Unknown]
  - Nausea [Recovering/Resolving]
  - Off label use [Unknown]
